FAERS Safety Report 11430068 (Version 2)
Quarter: 2015Q3

REPORT INFORMATION
  Report Type: Spontaneous
  Country: US (occurrence: US)
  Receive Date: 20150828
  Receipt Date: 20150904
  Transmission Date: 20151125
  Serious: Yes (Other)
  Sender: FDA-Public Use
  Company Number: PHEH2014US025668

PATIENT

DRUGS (2)
  1. KEPPRA [Suspect]
     Active Substance: LEVETIRACETAM
     Indication: PRODUCT USED FOR UNKNOWN INDICATION
     Dosage: 2500 MG, (1000 MG AT MORNING AT 1500 MG AT NIGHT)
     Route: 065
  2. TRILEPTAL [Suspect]
     Active Substance: OXCARBAZEPINE
     Indication: PRODUCT USED FOR UNKNOWN INDICATION
     Dosage: 500 MG, BID (500 MG IN MORNING AND 500 MG AT NIGHT)
     Route: 065

REACTIONS (10)
  - Sluggishness [Unknown]
  - Apathy [Unknown]
  - Disturbance in attention [Unknown]
  - Migraine [Unknown]
  - Suicidal ideation [Unknown]
  - Mood swings [Unknown]
  - Somnolence [Unknown]
  - Fatigue [Unknown]
  - Dizziness [Unknown]
  - Headache [Unknown]
